FAERS Safety Report 10072586 (Version 1)
Quarter: 2014Q2

REPORT INFORMATION
  Report Type: Spontaneous
  Country: GB (occurrence: GB)
  Receive Date: 20140411
  Receipt Date: 20140411
  Transmission Date: 20141212
  Serious: Yes (Hospitalization)
  Sender: FDA-Public Use
  Company Number: PHHY2014GB039904

PATIENT
  Age: 42 Year
  Sex: Male

DRUGS (9)
  1. PIPERACILLIN AND TAZOBACTAM [Suspect]
     Indication: SEPSIS
     Route: 042
     Dates: start: 20140301, end: 20140308
  2. METHOTREXATE [Interacting]
     Indication: RHEUMATIC DISORDER
     Dosage: 15 MG
     Route: 048
     Dates: start: 20140308
  3. CLEXANE [Concomitant]
     Indication: THROMBOSIS PROPHYLAXIS
     Dosage: 40 MG
     Route: 058
  4. EPREX [Concomitant]
     Dosage: 4000 IU
     Route: 058
  5. ALFACALCIDOL [Concomitant]
     Dosage: 0.5 MG
     Route: 048
  6. RANITIDINE [Concomitant]
     Dosage: 150 MG
     Route: 048
  7. PREDNISOLONE [Concomitant]
     Indication: RHEUMATIC DISORDER
     Dosage: 40 MG
     Route: 048
  8. FOLIC ACID [Concomitant]
     Indication: RHEUMATIC DISORDER
     Dosage: 10 MG
     Route: 048
     Dates: start: 20140307
  9. BISOPROLOL [Concomitant]
     Dosage: 1.25 MG
     Route: 048

REACTIONS (2)
  - Drug interaction [Unknown]
  - Neutropenia [Recovering/Resolving]
